FAERS Safety Report 9265986 (Version 3)
Quarter: 2013Q2

REPORT INFORMATION
  Report Type: Spontaneous
  Country: JP (occurrence: JP)
  Receive Date: 20130501
  Receipt Date: 20130619
  Transmission Date: 20140414
  Serious: Yes (Life-Threatening, Hospitalization)
  Sender: FDA-Public Use
  Company Number: JP-B.I. PHARMACEUTICALS,INC./RIDGEFIELD-2013-BI-11804NB

PATIENT
  Age: 77 Year
  Sex: Male
  Weight: 45.2 kg

DRUGS (11)
  1. PRAZAXA [Suspect]
     Indication: ATRIAL FIBRILLATION
     Dosage: 220 MG
     Route: 048
     Dates: start: 20130226, end: 20130228
  2. MAINTATE [Concomitant]
     Dosage: 1.25 MG
     Route: 048
  3. THYRADIN S [Concomitant]
     Dosage: 25 MCG
     Route: 048
  4. OMEPRAL [Concomitant]
     Dosage: 10 MG
     Route: 048
  5. INCREMIN [Concomitant]
     Dosage: 18 ML
     Route: 048
  6. ALLELOCK [Concomitant]
     Dosage: 10 MG
     Route: 048
  7. NAUZELIN [Concomitant]
     Dosage: 10 MG
     Route: 048
  8. CELECOX [Concomitant]
     Dosage: 400 MG
     Route: 048
  9. LENDORMIN [Concomitant]
     Dosage: 0.25 MG
     Route: 048
  10. DEPAS [Concomitant]
     Dosage: 0.5 MG
     Route: 048
  11. BISOLVON [Concomitant]
     Dosage: 8 MG
     Route: 048

REACTIONS (1)
  - Interstitial lung disease [Recovered/Resolved]
